FAERS Safety Report 16753694 (Version 1)
Quarter: 2019Q3

REPORT INFORMATION
  Report Type: Spontaneous
  Country: US (occurrence: US)
  Receive Date: 20190829
  Receipt Date: 20190829
  Transmission Date: 20191005
  Serious: Yes (Other)
  Sender: FDA-Public Use
  Company Number: US-FRESENIUS KABI-FK201909268

PATIENT
  Weight: 82.6 kg

DRUGS (9)
  1. HEPARIN SODIUM INJECTION, USP [Suspect]
     Active Substance: HEPARIN SODIUM
     Dosage: 3,000 UNITS
     Route: 042
     Dates: start: 20190813, end: 20190813
  2. HEPARIN SODIUM INJECTION, USP [Suspect]
     Active Substance: HEPARIN SODIUM
     Dosage: 3,000 UNITS
     Route: 042
     Dates: start: 20190813, end: 20190813
  3. PROTAMINE [Concomitant]
     Active Substance: PROTAMINE
     Indication: PRODUCT USED FOR UNKNOWN INDICATION
     Route: 065
     Dates: start: 20190813
  4. HEPARIN SODIUM INJECTION, USP [Suspect]
     Active Substance: HEPARIN SODIUM
     Dosage: 2,000 UNITS
     Route: 042
     Dates: start: 20190813, end: 20190813
  5. HEPARIN SODIUM INJECTION, USP [Suspect]
     Active Substance: HEPARIN SODIUM
     Dosage: 2,000 UNITS
     Route: 042
     Dates: start: 20190813, end: 20190813
  6. HEPARIN SODIUM INJECTION, USP [Suspect]
     Active Substance: HEPARIN SODIUM
     Indication: ANTICOAGULANT THERAPY
     Dosage: 8,000 UNITS
     Route: 042
     Dates: start: 20190813, end: 20190813
  7. HEPARIN SODIUM INJECTION, USP [Suspect]
     Active Substance: HEPARIN SODIUM
     Dosage: 3,000 UNITS
     Route: 042
     Dates: start: 20190813, end: 20190813
  8. HEPARIN SODIUM INJECTION, USP [Suspect]
     Active Substance: HEPARIN SODIUM
     Dosage: ADDITIONAL 4000 TO 5000 UNITS
     Route: 042
     Dates: start: 20190813, end: 20190813
  9. HEPARIN SODIUM INJECTION, USP [Suspect]
     Active Substance: HEPARIN SODIUM
     Dosage: 2,000 UNITS
     Route: 042
     Dates: start: 20190813, end: 20190813

REACTIONS (5)
  - Peripheral swelling [Unknown]
  - Haematoma [Unknown]
  - Therapeutic product effect decreased [Unknown]
  - Haemorrhage [Recovered/Resolved]
  - Therapeutic product effect prolonged [Unknown]

NARRATIVE: CASE EVENT DATE: 20190813
